FAERS Safety Report 5406640-5 (Version None)
Quarter: 2007Q3

REPORT INFORMATION
  Report Type: 
  Country: None (occurrence: None)
  Receive Date: 20070806
  Receipt Date: 20070725
  Transmission Date: 20080115
  Serious: Yes (Other)
  Sender: FDA-Public Use
  Company Number: US-PFIZER INC-2007062879

PATIENT
  Sex: Male

DRUGS (16)
  1. LIPITOR [Suspect]
     Indication: BLOOD CHOLESTEROL INCREASED
     Dosage: TEXT:10 MG QD EVERY DAY TDD:10 MG
  2. LISINOPRIL [Concomitant]
  3. WARFARIN SODIUM [Concomitant]
  4. ZYRTEC [Concomitant]
  5. PREVACID [Concomitant]
  6. ANTIINFLAMMATORY/ANTIRHEUMATIC PRODUCTS [Concomitant]
  7. VALIUM [Concomitant]
  8. VICODIN [Concomitant]
  9. ASPIRIN [Concomitant]
  10. GLUCOSAMINE [Concomitant]
  11. CHONDROITIN [Concomitant]
  12. METHYLSULFONYLMETHANE [Concomitant]
  13. FLEXERIL [Concomitant]
  14. SODIUM CHLORIDE [Concomitant]
     Route: 045
  15. VITAMIN CAP [Concomitant]
  16. ASCORBIC ACID [Concomitant]

REACTIONS (9)
  - ANGIOGRAM ABNORMAL [None]
  - CATARACT [None]
  - ELECTROCARDIOGRAM ABNORMAL [None]
  - MUSCLE SPASMS [None]
  - MUSCLE TWITCHING [None]
  - NECK PAIN [None]
  - ROAD TRAFFIC ACCIDENT [None]
  - WEIGHT DECREASED [None]
  - WEIGHT INCREASED [None]
